FAERS Safety Report 9081510 (Version 2)
Quarter: 2013Q2

REPORT INFORMATION
  Report Type: Spontaneous
  Country: US (occurrence: US)
  Receive Date: 20130218
  Receipt Date: 20130417
  Transmission Date: 20140414
  Serious: No
  Sender: FDA-Public Use
  Company Number: US-PFIZER INC-2013060092

PATIENT
  Age: 69 Year
  Sex: Female

DRUGS (7)
  1. INLYTA [Suspect]
     Indication: RENAL CANCER
     Dosage: 5 MG, UNK
     Dates: start: 20120810
  2. INLYTA [Suspect]
     Dosage: 5 MG, 2X/DAY
     Route: 048
     Dates: end: 201211
  3. INLYTA [Suspect]
     Dosage: 5 MG, 1X/DAY
     Route: 048
     Dates: end: 20120222
  4. CLONAZEPAM [Concomitant]
     Dosage: UNK
  5. OMEPRAZOLE [Concomitant]
     Dosage: UNK
  6. PROCHLORPERAZINE MALEATE [Concomitant]
     Dosage: UNK
  7. TRAMADOL HYDROCHLORIDE [Concomitant]
     Dosage: UNK

REACTIONS (2)
  - Disease progression [Not Recovered/Not Resolved]
  - Renal cancer [Not Recovered/Not Resolved]
